FAERS Safety Report 20692815 (Version 3)
Quarter: 2024Q1

REPORT INFORMATION
  Report Type: Other
  Country: EG (occurrence: None)
  Receive Date: 20220409
  Receipt Date: 20240131
  Transmission Date: 20240409
  Serious: Yes (Other)
  Sender: FDA-Public Use
  Company Number: EG-ROCHE-3067888

PATIENT
  Age: 22 Year
  Sex: Female
  Weight: 81 kg

DRUGS (1)
  1. OCREVUS [Suspect]
     Active Substance: OCRELIZUMAB
     Indication: Multiple sclerosis
     Dosage: DOSE AS 600 MG EVERY 24 WEEKS
     Route: 042
     Dates: start: 20211225, end: 20220611

REACTIONS (4)
  - Mobility decreased [Unknown]
  - Drug ineffective [Unknown]
  - Headache [Recovered/Resolved]
  - Fatigue [Recovered/Resolved]
